FAERS Safety Report 4337936-6 (Version None)
Quarter: 2004Q2

REPORT INFORMATION
  Report Type: 
  Country: None (occurrence: None)
  Receive Date: 20040408
  Receipt Date: 20040331
  Transmission Date: 20050107
  Serious: Yes (Hospitalization)
  Sender: FDA-Public Use
  Company Number: 2004SE01828

PATIENT
  Age: 66 Year
  Sex: Female

DRUGS (4)
  1. BLOPRESS [Suspect]
     Indication: HYPERTENSION
     Dosage: 8 MG DAILY PO
     Route: 048
     Dates: start: 20040321, end: 20040324
  2. TAKEPRON [Concomitant]
  3. MAGNESIUM OXIDE [Concomitant]
  4. SENNA LEAF [Concomitant]

REACTIONS (2)
  - BLOOD POTASSIUM INCREASED [None]
  - RHABDOMYOLYSIS [None]
